FAERS Safety Report 7729481-2 (Version None)
Quarter: 2011Q3

REPORT INFORMATION
  Report Type: 
  Country: None (occurrence: None)
  Receive Date: 20110906
  Receipt Date: 20110830
  Transmission Date: 20111222
  Serious: Yes (Other)
  Sender: FDA-Public Use
  Company Number: US-JNJFOC-20110900999

PATIENT
  Age: 67 Year
  Sex: Female
  Weight: 67.99 kg

DRUGS (7)
  1. MONISTAT [Suspect]
     Indication: VAGINAL INFECTION
     Route: 067
     Dates: start: 20110704, end: 20110704
  2. METOPROLOL [Concomitant]
     Indication: HYPERTENSION
  3. LEVOTHYROXINE SODIUM [Concomitant]
     Indication: HYPOTHYROIDISM
  4. AMLODIPINE BESYLATE [Concomitant]
     Indication: HYPERTENSION
     Dates: start: 20110601
  5. PREMARIN [Suspect]
     Indication: VULVOVAGINAL DRYNESS
     Route: 067
     Dates: start: 20100701, end: 20110701
  6. MONISTAT [Suspect]
     Route: 067
  7. CLEOCIN HYDROCHLORIDE [Suspect]
     Indication: VAGINAL INFECTION
     Route: 065
     Dates: start: 20110715, end: 20110715

REACTIONS (5)
  - DIZZINESS [None]
  - VULVOVAGINAL BURNING SENSATION [None]
  - VAGINAL DISCHARGE [None]
  - VISION BLURRED [None]
  - VISUAL IMPAIRMENT [None]
